FAERS Safety Report 9383055 (Version 1)
Quarter: 2013Q3

REPORT INFORMATION
  Report Type: Report from Study
  Country: AR (occurrence: AR)
  Receive Date: 20130704
  Receipt Date: 20130704
  Transmission Date: 20140515
  Serious: Yes (Other)
  Sender: FDA-Public Use
  Company Number: AR-ROCHE-1243765

PATIENT
  Sex: Female

DRUGS (1)
  1. RANIBIZUMAB [Suspect]
     Indication: MACULOPATHY
     Route: 050
     Dates: start: 2011

REACTIONS (2)
  - Eye haemorrhage [Recovering/Resolving]
  - Visual acuity reduced [Recovering/Resolving]
